FAERS Safety Report 24247927 (Version 1)
Quarter: 2024Q3

REPORT INFORMATION
  Report Type: Spontaneous
  Country: CN (occurrence: CN)
  Receive Date: 20240826
  Receipt Date: 20240826
  Transmission Date: 20241017
  Serious: Yes (Other)
  Sender: CHEPLAPHARM
  Company Number: CN-CHEPLA-2024010864

PATIENT
  Age: 68 Year
  Sex: Male
  Weight: 68 kg

DRUGS (5)
  1. CAPECITABINE [Suspect]
     Active Substance: CAPECITABINE
     Indication: Colon cancer
     Dosage: BID/APPROVAL NO. GYZZ H20073024/1G PO BID D1-14)?DAILY DOSE: 2 GRAM
     Route: 048
     Dates: start: 20240514, end: 20240527
  2. IRINOTECAN HYDROCHLORIDE [Suspect]
     Active Substance: IRINOTECAN HYDROCHLORIDE
     Indication: Colon cancer
     Dosage: ROA: IV DRIP/APPROVAL NO. GYZZ H20143126/NS 340ML + CETUXIMAB 800MG IVGTT D1
     Route: 042
     Dates: start: 20240514, end: 20240514
  3. CETUXIMAB [Suspect]
     Active Substance: CETUXIMAB
     Indication: Colon cancer
     Dosage: ROA: IV DRIP/APPROVAL NO. S20171039 /BATCH NO. UNKNOWN/NS 250ML + IRINOTECAN 12.5ML IVGTT D1
     Route: 042
     Dates: start: 20240514, end: 20240514
  4. SODIUM CHLORIDE [Concomitant]
     Active Substance: SODIUM CHLORIDE
     Dosage: APPROVAL NO. GYZZ H13023200/ROA: IV DRIP?DAILY DOSE: 340 MILLILITRE
     Route: 042
     Dates: start: 20240514, end: 20240514
  5. SODIUM CHLORIDE [Concomitant]
     Active Substance: SODIUM CHLORIDE
     Dosage: APPROVAL NO. GYZZ H13023201/ROA: IV DRIP?DAILY DOSE: 250 MILLILITRE
     Route: 042
     Dates: start: 20240514, end: 20240514

REACTIONS (3)
  - Leukopenia [Recovered/Resolved]
  - Neutropenia [Recovered/Resolved]
  - Condition aggravated [Recovered/Resolved]

NARRATIVE: CASE EVENT DATE: 20240528
